FAERS Safety Report 12550283 (Version 3)
Quarter: 2016Q3

REPORT INFORMATION
  Report Type: Report from Study
  Country: CA (occurrence: CA)
  Receive Date: 20160712
  Receipt Date: 20160731
  Transmission Date: 20161109
  Serious: Yes (Other)
  Sender: FDA-Public Use
  Company Number: PHHY2016CA094512

PATIENT
  Age: 27 Year
  Sex: Female

DRUGS (1)
  1. GILENYA [Suspect]
     Active Substance: FINGOLIMOD HYDROCHLORIDE
     Indication: MULTIPLE SCLEROSIS
     Dosage: UNK
     Route: 048
     Dates: start: 20150105, end: 20160712

REACTIONS (5)
  - Abdominal pain upper [Unknown]
  - White blood cell count increased [Unknown]
  - Leiomyosarcoma [Recovered/Resolved]
  - Vomiting [Unknown]
  - Lumbar radiculopathy [Unknown]

NARRATIVE: CASE EVENT DATE: 201504
